FAERS Safety Report 8225241-7 (Version None)
Quarter: 2012Q1

REPORT INFORMATION
  Report Type: 
  Country: None (occurrence: None)
  Receive Date: 20120321
  Receipt Date: 20120308
  Transmission Date: 20120608
  Serious: Yes (Death)
  Sender: FDA-Public Use
  Company Number: TR-ACTELION-A-CH2012-62307

PATIENT
  Sex: Male

DRUGS (2)
  1. SILDENAFIL [Concomitant]
  2. TRACLEER [Suspect]
     Indication: PULMONARY ARTERIAL HYPERTENSION
     Dosage: 7.5 MG, BID
     Route: 048
     Dates: start: 20110912

REACTIONS (4)
  - TRACHEOSTOMY [None]
  - SEPSIS [None]
  - PULMONARY ARTERIAL HYPERTENSION [None]
  - CROSS INFECTION [None]
